FAERS Safety Report 8806470 (Version 3)
Quarter: 2013Q3

REPORT INFORMATION
  Report Type: Spontaneous
  Country: US (occurrence: US)
  Receive Date: 20120925
  Receipt Date: 20130729
  Transmission Date: 20140515
  Serious: Yes (Hospitalization, Disabling, Other)
  Sender: FDA-Public Use
  Company Number: US-BAYER-2012-098274

PATIENT
  Age: 31 Year
  Sex: Female

DRUGS (7)
  1. YAZ [Suspect]
  2. YASMIN [Suspect]
  3. OCELLA [Suspect]
  4. FENOFIBRATE [Concomitant]
  5. INSULIN [Concomitant]
  6. AMBIEN [Concomitant]
  7. OMEGA-3 [Concomitant]

REACTIONS (8)
  - Pulmonary embolism [None]
  - Thrombosis [None]
  - Injury [None]
  - Pain [None]
  - Fear of death [None]
  - Emotional distress [None]
  - Anxiety [None]
  - Pain [None]
